FAERS Safety Report 25219374 (Version 1)
Quarter: 2025Q2

REPORT INFORMATION
  Report Type: Spontaneous
  Country: GB (occurrence: GB)
  Receive Date: 20250421
  Receipt Date: 20250421
  Transmission Date: 20250717
  Serious: Yes (Other)
  Sender: MYLAN
  Company Number: GB-MHRA-TPP38868099C8964017YC1744368721787

PATIENT
  Age: 63 Year
  Sex: Male
  Weight: 54 kg

DRUGS (18)
  1. LORATADINE [Suspect]
     Active Substance: LORATADINE
     Indication: Ill-defined disorder
  2. GLYCERIN [Concomitant]
     Active Substance: GLYCERIN
     Indication: Ill-defined disorder
     Dates: start: 20250210, end: 20250310
  3. Relaxit [Concomitant]
     Indication: Ill-defined disorder
     Dates: start: 20250210, end: 20250222
  4. SODIUM CITRATE [Concomitant]
     Active Substance: SODIUM CITRATE
     Indication: Ill-defined disorder
  5. POLYETHYLENE GLYCOLS [Concomitant]
     Active Substance: POLYETHYLENE GLYCOLS
     Indication: Ill-defined disorder
  6. AMLODIPINE [Concomitant]
     Active Substance: AMLODIPINE BESYLATE
     Indication: Ill-defined disorder
     Dosage: 1 DOSAGE FORM, QD (TAKE ONE TABLET ONCE A DAY)
     Dates: start: 20241231, end: 20250204
  7. CREON [Concomitant]
     Active Substance: PANCRELIPASE AMYLASE\PANCRELIPASE LIPASE\PANCRELIPASE PROTEASE
     Indication: Ill-defined disorder
  8. DOXAZOSIN [Concomitant]
     Active Substance: DOXAZOSIN MESYLATE
     Indication: Ill-defined disorder
     Dosage: 1 DOSAGE FORM, QD (TAKE ONE TABLET ONCE A DAY)
     Dates: start: 20241231, end: 20250204
  9. LEVOTHYROXINE [Concomitant]
     Active Substance: LEVOTHYROXINE
     Indication: Ill-defined disorder
  10. OMEPRAZOLE [Concomitant]
     Active Substance: OMEPRAZOLE
     Indication: Ill-defined disorder
     Dosage: 1 DOSAGE FORM, QD (1 CAPSULE ONCE A DAY)
     Dates: start: 20241231, end: 20250211
  11. RAMIPRIL [Concomitant]
     Active Substance: RAMIPRIL
     Indication: Ill-defined disorder
     Dosage: 1 DOSAGE FORM, QD (TAKE ONE DAILY)
     Dates: start: 20241231, end: 20250204
  12. DOCUSATE SODIUM [Concomitant]
     Active Substance: DOCUSATE SODIUM
     Indication: Constipation
     Dosage: 2 DOSAGE FORM, BID (TAKE TWO CAPSULES TWICE DAILY FOR CONSTIPATION )
     Dates: start: 20250109
  13. SENNA [Concomitant]
     Active Substance: SENNOSIDES
     Indication: Ill-defined disorder
     Dosage: UNK, PM (TAKE ONE OR TWO TABLETS AT BEDTIME TO HELP RELI)
     Dates: start: 20250109
  14. FERROUS FUMARATE [Concomitant]
     Active Substance: FERROUS FUMARATE
     Indication: Ill-defined disorder
  15. MORPHINE SULFATE [Concomitant]
     Active Substance: MORPHINE SULFATE
     Indication: Analgesic therapy
     Dosage: 2 DOSAGE FORM, BID (TAKE TWO CAPSULES EVERY 12 HOURS FOR PAIN RELIE)
     Dates: start: 20250211
  16. CARBOHYDRATES\FATTY ACIDS\MINERALS\PROTEIN\VITAMINS [Concomitant]
     Active Substance: CARBOHYDRATES\FATTY ACIDS\MINERALS\PROTEIN\VITAMINS
     Indication: Ill-defined disorder
     Dosage: UNK, QD (TAKE UP TO TWO EACH DAY IN BETWEEN REGULAR FOR)
     Dates: start: 20250226
  17. METOCLOPRAMIDE [Concomitant]
     Active Substance: METOCLOPRAMIDE
     Indication: Ill-defined disorder
  18. Conotrane [Concomitant]
     Indication: Ill-defined disorder

REACTIONS (1)
  - Confusional state [Unknown]
